FAERS Safety Report 24647951 (Version 4)
Quarter: 2024Q4

REPORT INFORMATION
  Report Type: Spontaneous
  Country: JP (occurrence: JP)
  Receive Date: 20241121
  Receipt Date: 20241219
  Transmission Date: 20250115
  Serious: Yes (Other)
  Sender: MERZ
  Company Number: JP-teijin-202404477_XEO_P_1

PATIENT

DRUGS (3)
  1. XEOMIN [Suspect]
     Active Substance: INCOBOTULINUMTOXINA
     Indication: Muscle contracture
     Route: 030
     Dates: start: 202405, end: 202405
  2. XEOMIN [Suspect]
     Active Substance: INCOBOTULINUMTOXINA
     Route: 030
  3. XEOMIN [Suspect]
     Active Substance: INCOBOTULINUMTOXINA
     Route: 030
     Dates: start: 202408, end: 202408

REACTIONS (5)
  - Aspiration [Recovered/Resolved]
  - Asphyxia [Recovered/Resolved]
  - Choking [Recovered/Resolved]
  - Respiratory acidosis [Recovered/Resolved]
  - Dysphagia [Recovered/Resolved]

NARRATIVE: CASE EVENT DATE: 20240101
